FAERS Safety Report 25586803 (Version 1)
Quarter: 2025Q3

REPORT INFORMATION
  Report Type: Spontaneous
  Country: EU (occurrence: EU)
  Receive Date: 20250721
  Receipt Date: 20250721
  Transmission Date: 20251021
  Serious: Yes (Other)
  Sender: SANDOZ
  Company Number: EU-SANDOZ-SDZ2025DE039352

PATIENT
  Age: 62 Year
  Sex: Male

DRUGS (1)
  1. MOMETASONE [Suspect]
     Active Substance: MOMETASONE
     Indication: Chronic sinusitis
     Dosage: UNK, USES IT ONCE A WEEK (I TOOK IT FOR 1.5 WEEK)
     Route: 065
     Dates: end: 20250422

REACTIONS (4)
  - Eye disorder [Unknown]
  - Intraocular pressure test abnormal [Unknown]
  - Periorbital swelling [Not Recovered/Not Resolved]
  - Drug ineffective [Unknown]

NARRATIVE: CASE EVENT DATE: 20250602
